FAERS Safety Report 5945178-3 (Version None)
Quarter: 2008Q4

REPORT INFORMATION
  Report Type: 
  Country: None (occurrence: None)
  Receive Date: 20081107
  Receipt Date: 20081031
  Transmission Date: 20090506
  Serious: Yes (Death)
  Sender: FDA-Public Use
  Company Number: B0542956A

PATIENT
  Age: 49 Year
  Sex: Male

DRUGS (2)
  1. AUGMENTIN '125' [Suspect]
     Indication: PROPHYLAXIS
     Route: 065
     Dates: start: 20080926, end: 20080926
  2. LOCAL ANESTHESIA [Concomitant]
     Route: 065
     Dates: start: 20080926, end: 20080926

REACTIONS (2)
  - ANAPHYLACTIC SHOCK [None]
  - COMA [None]
